FAERS Safety Report 11736541 (Version 3)
Quarter: 2016Q3

REPORT INFORMATION
  Report Type: Spontaneous
  Country: US (occurrence: US)
  Receive Date: 20151113
  Receipt Date: 20160926
  Transmission Date: 20161109
  Serious: Yes (Hospitalization)
  Sender: FDA-Public Use
  Company Number: US-JNJFOC-20151002456

PATIENT
  Age: 58 Year
  Sex: Female
  Weight: 65.77 kg

DRUGS (6)
  1. LEVAQUIN [Suspect]
     Active Substance: LEVOFLOXACIN
     Indication: INFECTION
     Route: 048
     Dates: start: 20140407, end: 20140414
  2. LEVAQUIN [Suspect]
     Active Substance: LEVOFLOXACIN
     Indication: DISCOMFORT
     Route: 048
     Dates: start: 20140705, end: 20140706
  3. LEVAQUIN [Suspect]
     Active Substance: LEVOFLOXACIN
     Indication: CELLULITIS
     Route: 048
     Dates: start: 20140407, end: 20140414
  4. LEVAQUIN [Suspect]
     Active Substance: LEVOFLOXACIN
     Indication: INFECTION
     Route: 048
     Dates: start: 20140705, end: 20140706
  5. LEVAQUIN [Suspect]
     Active Substance: LEVOFLOXACIN
     Indication: CELLULITIS
     Route: 048
     Dates: start: 20140705, end: 20140706
  6. LEVAQUIN [Suspect]
     Active Substance: LEVOFLOXACIN
     Indication: DISCOMFORT
     Route: 048
     Dates: start: 20140407, end: 20140414

REACTIONS (1)
  - Neuropathy peripheral [Not Recovered/Not Resolved]

NARRATIVE: CASE EVENT DATE: 201407
